FAERS Safety Report 18502689 (Version 1)
Quarter: 2020Q4

REPORT INFORMATION
  Report Type: Spontaneous
  Country: RU (occurrence: RU)
  Receive Date: 20201113
  Receipt Date: 20201113
  Transmission Date: 20210114
  Serious: Yes (Other)
  Sender: FDA-Public Use
  Company Number: RU-SA-2020SA316622

PATIENT

DRUGS (7)
  1. PROTAFEN [Concomitant]
     Indication: TYPE 2 DIABETES MELLITUS
     Dosage: 22 (UNIT UNKNOWN) UNK
     Route: 048
     Dates: start: 2006, end: 20191210
  2. NIFEDIPINUM [Concomitant]
     Indication: HYPERTENSION
     Dosage: 5 MG
     Route: 048
     Dates: start: 20191211, end: 20191212
  3. ACTRAPID [Concomitant]
     Active Substance: INSULIN HUMAN
     Indication: TYPE 2 DIABETES MELLITUS
     Dosage: 10 (UNIT UNKNOWN)
     Route: 058
     Dates: start: 2006, end: 20191210
  4. LOZARTEN [Concomitant]
     Indication: HYPERTENSION
     Dosage: 50 MG
     Route: 048
     Dates: start: 20191210, end: 20191216
  5. THIOCTIC ACID [Concomitant]
     Active Substance: .ALPHA.-LIPOIC ACID
     Indication: DIABETIC NEUROPATHY
     Dosage: 600 MG
     Route: 041
     Dates: start: 20191210, end: 20191216
  6. APIDRA SOLOSTAR [Suspect]
     Active Substance: INSULIN GLULISINE
     Indication: TYPE 2 DIABETES MELLITUS
     Dosage: 6 (UNIT UNKNOWN), TID
     Route: 058
     Dates: start: 20191211, end: 20191212
  7. TOUJEO [Suspect]
     Active Substance: INSULIN GLARGINE
     Indication: TYPE 2 DIABETES MELLITUS
     Dosage: 26 (UNIT UNKNOWN ),  QD
     Route: 058
     Dates: start: 20191211, end: 20191212

REACTIONS (1)
  - Blood pressure increased [Recovered/Resolved]

NARRATIVE: CASE EVENT DATE: 20191211
